FAERS Safety Report 9336724 (Version 1)
Quarter: 2013Q2

REPORT INFORMATION
  Report Type: Spontaneous
  Country: DK (occurrence: FR)
  Receive Date: 20130607
  Receipt Date: 20130607
  Transmission Date: 20140414
  Serious: Yes (Other)
  Sender: FDA-Public Use
  Company Number: FR-FRI-1000045740

PATIENT
  Age: 56 Year
  Sex: Female

DRUGS (4)
  1. ESCITALOPRAM [Suspect]
     Route: 048
     Dates: start: 20110203
  2. LEXOMIL [Suspect]
     Route: 048
     Dates: start: 20110303
  3. TEMESTA [Suspect]
     Route: 048
  4. LYSANXIA [Suspect]
     Route: 048

REACTIONS (1)
  - Loose tooth [Not Recovered/Not Resolved]
